FAERS Safety Report 7299580-0 (Version None)
Quarter: 2011Q1

REPORT INFORMATION
  Report Type: 
  Country: None (occurrence: None)
  Receive Date: 20110217
  Receipt Date: 20110211
  Transmission Date: 20110831
  Serious: Yes (Other)
  Sender: FDA-Public Use
  Company Number: US-ABBOTT-11P-163-0705095-00

PATIENT
  Sex: Male

DRUGS (5)
  1. HUMIRA [Suspect]
     Indication: ANKYLOSING SPONDYLITIS
     Dates: start: 20060101
  2. HYDROCODONE [Concomitant]
     Indication: PAIN
     Dosage: AS NEEDED
  3. VICODIN [Concomitant]
     Indication: PAIN
     Dosage: 650MG X 2 TABLETS, 1/2 TABLET AT A TIME
  4. HUMIRA [Suspect]
     Indication: SACROILIITIS
  5. MOTRIN [Concomitant]
     Indication: PAIN
     Dosage: PRN

REACTIONS (3)
  - SKIN REACTION [None]
  - TUBERCULIN TEST POSITIVE [None]
  - HYPERAESTHESIA [None]
